FAERS Safety Report 21098162 (Version 2)
Quarter: 2025Q1

REPORT INFORMATION
  Report Type: Spontaneous
  Country: FR (occurrence: FR)
  Receive Date: 20220719
  Receipt Date: 20250210
  Transmission Date: 20250409
  Serious: Yes (Death, Hospitalization, Other)
  Sender: AUROBINDO
  Company Number: FR-Indivior Limited-INDV-134654-2022

PATIENT
  Age: 34 Year
  Sex: Female

DRUGS (23)
  1. MIRTAZAPINE [Suspect]
     Active Substance: MIRTAZAPINE
     Indication: Product used for unknown indication
     Dosage: 45 MILLIGRAM, ONCE A DAY (15 MILLIGRAM, TID)
     Route: 065
  2. OXAZEPAM [Suspect]
     Active Substance: OXAZEPAM
     Indication: Product used for unknown indication
     Route: 065
  3. ZOPICLONE [Suspect]
     Active Substance: ZOPICLONE
     Indication: Product used for unknown indication
     Route: 065
  4. VALPROIC ACID [Suspect]
     Active Substance: VALPROIC ACID
     Indication: Product used for unknown indication
     Route: 065
  5. DAFALGAN [Suspect]
     Active Substance: ACETAMINOPHEN
     Indication: Product used for unknown indication
     Dosage: 500 MILLIGRAM, ONCE A DAY (AS NEEDED 2 CAPSULES MAXIMUM PER DOSE ? 6 CAPSULES MAXIMUM PER DAY)
     Route: 065
  6. BRINTELLIX [Suspect]
     Active Substance: VORTIOXETINE HYDROBROMIDE
     Indication: Product used for unknown indication
     Dosage: 20 MILLIGRAM, ONCE A DAY (1 TABLET - MORNING (8AM))
     Route: 065
  7. BUSPIRONE HYDROCHLORIDE [Suspect]
     Active Substance: BUSPIRONE HYDROCHLORIDE
     Indication: Depression
     Dosage: 3 MILLIGRAM, ONCE A DAY (1 MILLIGRAM, TID)
     Route: 065
  8. BUSPIRONE HYDROCHLORIDE [Suspect]
     Active Substance: BUSPIRONE HYDROCHLORIDE
     Dosage: 10 MILLIGRAM, ONCE A DAY (1 TABLET - MORNING (8 A.M.) // 1-AFTERNOON// 1- EVENING (6 P.M.))
     Route: 065
  9. OXAZEPAM [Suspect]
     Active Substance: OXAZEPAM
     Indication: Product used for unknown indication
     Dosage: 150 MILLIGRAM, ONCE A DAY (50 MILLIGRAM, TID)
     Route: 065
  10. OXAZEPAM [Suspect]
     Active Substance: OXAZEPAM
     Dosage: 200 MILLIGRAM, ONCE A DAY (1 TABLET - MORNING (8AM) // 1 - MIDDAY//1 - EVENING (6PM) //1 - BEDTIME (
     Route: 065
  11. SUBUTEX [Suspect]
     Active Substance: BUPRENORPHINE HYDROCHLORIDE
     Indication: Drug dependence
     Route: 060
     Dates: start: 20181018, end: 20181020
  12. SUBUTEX [Suspect]
     Active Substance: BUPRENORPHINE HYDROCHLORIDE
     Route: 060
     Dates: start: 20181017
  13. SUBUTEX [Suspect]
     Active Substance: BUPRENORPHINE HYDROCHLORIDE
     Dosage: 2 MILLIGRAM, ONCE A DAY (MORNING, NOON, 4 PM AND EVENING)
     Route: 060
     Dates: start: 20181019
  14. SUBUTEX [Suspect]
     Active Substance: BUPRENORPHINE HYDROCHLORIDE
     Dosage: 4 MILLIGRAM, ONCE A DAY  (THREE IN MORNING AND ONE IN EVENING)
     Route: 060
     Dates: start: 20181020
  15. NICOTINE [Suspect]
     Active Substance: NICOTINE
     Indication: Product used for unknown indication
     Route: 065
  16. ALCOHOL [Suspect]
     Active Substance: ALCOHOL
     Indication: Product used for unknown indication
     Route: 065
  17. ARIPIPRAZOLE [Concomitant]
     Active Substance: ARIPIPRAZOLE
     Indication: Bipolar disorder
     Dosage: 20 MILLIGRAM, ONCE A DAY (10 MILLIGRAMA, BID)
     Route: 065
  18. DEPAKOTE [Concomitant]
     Active Substance: DIVALPROEX SODIUM
     Indication: Bipolar disorder
     Route: 065
  19. TRIHEXYPHENIDYL HYDROCHLORIDE [Concomitant]
     Active Substance: TRIHEXYPHENIDYL HYDROCHLORIDE
     Indication: Bipolar disorder
     Dosage: 5 MILLIGRAM, ONCE A DAY (2 CAPSULES - EVENING (6 PM)
     Route: 065
  20. CYAMEMAZINE [Concomitant]
     Active Substance: CYAMEMAZINE
     Indication: Product used for unknown indication
     Dosage: 75 MILLIGRAM, ONCE A DAY (25 MILLIGRAM, TID)
     Route: 065
  21. Transipeg [Concomitant]
     Indication: Product used for unknown indication
     Dosage: 5.9 GRAM, ONCE A DAY (2 SACHETS - MORNING (8AM))
     Route: 048
  22. IMOVANE [Concomitant]
     Active Substance: ZOPICLONE
     Indication: Product used for unknown indication
     Dosage: 7.5 MILLIGRAM, ONCE A DAY (1 TABLET - BEDTIME (9PM))
     Route: 065
  23. TRIMEPRAZINE [Concomitant]
     Active Substance: TRIMEPRAZINE
     Indication: Product used for unknown indication
     Dosage: 5 MILLIGRAM, ONCE A DAY (4 TABLETS - BEDTIME (9 P.M.) AS NEEDED)
     Route: 065

REACTIONS (7)
  - Serotonin syndrome [Fatal]
  - Toxicity to various agents [Fatal]
  - Overdose [Fatal]
  - Cardiac failure [Unknown]
  - Drug abuse [Unknown]
  - Intentional product use issue [Unknown]
  - Inappropriate schedule of product administration [Recovered/Resolved]

NARRATIVE: CASE EVENT DATE: 20181001
